FAERS Safety Report 9608638 (Version 1)
Quarter: 2013Q4

REPORT INFORMATION
  Report Type: Spontaneous
  Country: GH (occurrence: GH)
  Receive Date: 20131009
  Receipt Date: 20131009
  Transmission Date: 20140711
  Serious: Yes (Disabling, Other)
  Sender: FDA-Public Use
  Company Number: GH-ASTRAZENECA-2013SE74222

PATIENT
  Age: 50 Year
  Sex: Female

DRUGS (4)
  1. XYLOCAINE WITH ADRENALINE [Suspect]
     Indication: ANAESTHESIA
     Route: 056
  2. GENTAMYCIN [Suspect]
     Indication: PROPHYLAXIS
     Dosage: 20 MG IN 0.5 ML
     Route: 047
  3. DEXAMETHASONE [Concomitant]
     Dosage: 1 MG IN 0.5 ML
  4. NIFEDIPINE [Concomitant]
     Route: 048

REACTIONS (1)
  - Blindness unilateral [Not Recovered/Not Resolved]
